FAERS Safety Report 19088560 (Version 1)
Quarter: 2021Q2

REPORT INFORMATION
  Report Type: Spontaneous
  Country: IN (occurrence: IN)
  Receive Date: 20210402
  Receipt Date: 20210402
  Transmission Date: 20210717
  Serious: Yes (Hospitalization, Other)
  Sender: FDA-Public Use
  Company Number: IN-VALIDUS PHARMACEUTICALS LLC-IN-2021VAL000648

PATIENT
  Age: 36 Year
  Sex: Female

DRUGS (1)
  1. CEFOTAXIME SODIUM [Suspect]
     Active Substance: CEFOTAXIME SODIUM
     Indication: ANTIBIOTIC PROPHYLAXIS
     Dosage: 1 G, IV NOS

REACTIONS (2)
  - Fixed eruption [Recovered/Resolved]
  - Lip oedema [Recovered/Resolved]
